FAERS Safety Report 11342715 (Version 2)
Quarter: 2016Q1

REPORT INFORMATION
  Report Type: Spontaneous
  Country: IN (occurrence: IN)
  Receive Date: 20150805
  Receipt Date: 20160210
  Transmission Date: 20160525
  Serious: Yes (Death, Hospitalization, Other)
  Sender: FDA-Public Use
  Company Number: IN-PFIZER INC-2015250358

PATIENT
  Age: 55 Year
  Sex: Male

DRUGS (3)
  1. SUTENT [Suspect]
     Active Substance: SUNITINIB MALATE
     Indication: METASTATIC RENAL CELL CARCINOMA
     Dosage: 50 MG, CYCLIC 1X/DAY (TWO WEEKS ON AND ONE WEEK OFF)
     Route: 048
     Dates: start: 20150704
  2. SUTENT [Suspect]
     Active Substance: SUNITINIB MALATE
     Dosage: 25 MG, UNK
     Dates: end: 20151014
  3. SUTENT [Suspect]
     Active Substance: SUNITINIB MALATE
     Dosage: 37.5 MG, UNK

REACTIONS (9)
  - Oral mucosal blistering [Not Recovered/Not Resolved]
  - Disease progression [Unknown]
  - Dyspnoea [Fatal]
  - Pain [Not Recovered/Not Resolved]
  - Metastatic renal cell carcinoma [Unknown]
  - Abdominal pain upper [Unknown]
  - Abasia [Unknown]
  - Eye swelling [Unknown]
  - Erythema [Not Recovered/Not Resolved]

NARRATIVE: CASE EVENT DATE: 20150716
